FAERS Safety Report 8241673 (Version 2)
Quarter: 2013Q1

REPORT INFORMATION
  Report Type: Spontaneous
  Country: VE (occurrence: VE)
  Receive Date: 20111111
  Receipt Date: 20130215
  Transmission Date: 20140127
  Serious: Yes (Hospitalization, Other)
  Sender: FDA-Public Use
  Company Number: VE-ROCHE-1009036

PATIENT
  Age: 68 None
  Sex: Female

DRUGS (6)
  1. XOLAIR [Suspect]
     Indication: ASTHMA
     Route: 058
     Dates: start: 20100921
  2. XOLAIR [Suspect]
     Route: 058
     Dates: end: 20110921
  3. ADALAT OROS [Concomitant]
     Route: 065
  4. BENICAR [Concomitant]
     Route: 065
  5. CONCOR [Concomitant]
     Route: 065
  6. METHOTREXATE [Concomitant]

REACTIONS (8)
  - Pulmonary oedema [Unknown]
  - Myocardial infarction [Unknown]
  - Device breakage [Recovered/Resolved]
  - Impaired healing [Recovered/Resolved]
  - Lower limb fracture [Not Recovered/Not Resolved]
  - Road traffic accident [Unknown]
  - Gait disturbance [Unknown]
  - Asthma [Unknown]
